FAERS Safety Report 4407135-8 (Version None)
Quarter: 2004Q3

REPORT INFORMATION
  Report Type: 
  Country: None (occurrence: None)
  Receive Date: 20040723
  Receipt Date: 20040723
  Transmission Date: 20050211
  Serious: Yes (Other)
  Sender: FDA-Public Use
  Company Number: None

PATIENT
  Age: 56 Year
  Sex: Male
  Weight: 88 kg

DRUGS (12)
  1. CEFUROXIME AXETIL [Suspect]
  2. AZITHROMYCIN [Concomitant]
  3. DIPHENHYDRAMINE HCL [Concomitant]
  4. TRIAMCINOLONE [Concomitant]
  5. CEFUROXIME AXETIL [Concomitant]
  6. DM/GUAIFENESIN [Concomitant]
  7. ALBUTEROL [Concomitant]
  8. CAPSAICIN [Concomitant]
  9. CYCLOBENZAPRINE HCL [Concomitant]
  10. TRAMADOL HCL [Concomitant]
  11. OMEPRAZOLE [Concomitant]
  12. TRIAMCINOLONE ACETONIDE [Concomitant]

REACTIONS (2)
  - RASH [None]
  - URTICARIA [None]
